FAERS Safety Report 9308445 (Version 1)
Quarter: 2013Q2

REPORT INFORMATION
  Report Type: Spontaneous
  Country: TR (occurrence: TR)
  Receive Date: 20130524
  Receipt Date: 20130524
  Transmission Date: 20140414
  Serious: Yes (Hospitalization)
  Sender: FDA-Public Use
  Company Number: TR-JNJFOC-20130513274

PATIENT
  Sex: Male

DRUGS (4)
  1. REMICADE [Suspect]
     Indication: ANKYLOSING SPONDYLITIS
     Dosage: FIFTH DOSE
     Route: 042
     Dates: start: 20121121
  2. REMICADE [Suspect]
     Indication: ANKYLOSING SPONDYLITIS
     Dosage: SIXTH DOSE
     Route: 042
     Dates: start: 20130109
  3. REMICADE [Suspect]
     Indication: ANKYLOSING SPONDYLITIS
     Dosage: SEVENTH DOSE
     Route: 042
     Dates: start: 20130220
  4. REMICADE [Suspect]
     Indication: ANKYLOSING SPONDYLITIS
     Route: 042
     Dates: start: 201205

REACTIONS (3)
  - Tympanic membrane disorder [Unknown]
  - Sinus congestion [Unknown]
  - Otitis media [Unknown]
